FAERS Safety Report 18571809 (Version 1)
Quarter: 2020Q4

REPORT INFORMATION
  Report Type: Report from Study
  Country: None (occurrence: GB)
  Receive Date: 20201202
  Receipt Date: 20201202
  Transmission Date: 20210114
  Serious: Yes (Hospitalization)
  Sender: FDA-Public Use
  Company Number: GB-ABBVIE-20P-167-3675081-00

PATIENT
  Age: 73 Year
  Sex: Male

DRUGS (2)
  1. RITUXIMAB. [Concomitant]
     Active Substance: RITUXIMAB
     Indication: MANTLE CELL LYMPHOMA
     Dosage: CYCLE 1
     Route: 042
     Dates: start: 20200401
  2. IBRUTINIB [Suspect]
     Active Substance: IBRUTINIB
     Indication: MANTLE CELL LYMPHOMA
     Dosage: CYCLE 1
     Route: 048
     Dates: start: 20200401

REACTIONS (1)
  - Infective exacerbation of chronic obstructive airways disease [Not Recovered/Not Resolved]

NARRATIVE: CASE EVENT DATE: 20201124
